FAERS Safety Report 20091139 (Version 1)
Quarter: 2021Q4

REPORT INFORMATION
  Report Type: Spontaneous
  Country: US (occurrence: None)
  Receive Date: 20211118
  Receipt Date: 20211118
  Transmission Date: 20220303
  Serious: No
  Sender: FDA-Public Use
  Company Number: None

PATIENT

DRUGS (3)
  1. APIXABAN [Suspect]
     Active Substance: APIXABAN
     Route: 048
  2. ELIQUIS [Suspect]
     Active Substance: APIXABAN
     Route: 048
  3. WARFARIN SODIUM [Suspect]
     Active Substance: WARFARIN SODIUM
     Route: 048

REACTIONS (2)
  - Product dispensing error [None]
  - Wrong product administered [None]
